FAERS Safety Report 20868177 (Version 3)
Quarter: 2023Q1

REPORT INFORMATION
  Report Type: Spontaneous
  Country: CN (occurrence: CN)
  Receive Date: 20220524
  Receipt Date: 20230131
  Transmission Date: 20230417
  Serious: Yes (Other)
  Sender: FDA-Public Use
  Company Number: CN-NOVARTISPH-NVSC2022CN118432

PATIENT
  Age: 18 Year
  Sex: Female
  Weight: 30 kg

DRUGS (7)
  1. TRILEPTAL [Suspect]
     Active Substance: OXCARBAZEPINE
     Indication: Epilepsy
     Dosage: 0.75 G, QD, (0.3 IN THE MORNING AND 0.45 IN THE EVENING)
     Route: 048
     Dates: start: 20150601, end: 20210127
  2. TRILEPTAL [Suspect]
     Active Substance: OXCARBAZEPINE
     Dosage: 0.3 G, BID
     Route: 048
     Dates: start: 20210128, end: 20210131
  3. TRILEPTAL [Suspect]
     Active Substance: OXCARBAZEPINE
     Dosage: 0.3 G, QD
     Route: 048
     Dates: start: 20210131
  4. TIGECYCLINE [Concomitant]
     Active Substance: TIGECYCLINE
     Indication: Pneumonia
     Dosage: 2 MG, BID
     Route: 042
     Dates: start: 20210119, end: 20210202
  5. CLONAZEPAM [Concomitant]
     Active Substance: CLONAZEPAM
     Indication: Epilepsy
     Dosage: 1 MG, Q12H
     Route: 048
     Dates: start: 2015
  6. CLONAZEPAM [Concomitant]
     Active Substance: CLONAZEPAM
     Dosage: UNK
     Route: 065
  7. MIDAZOLAM [Concomitant]
     Active Substance: MIDAZOLAM
     Indication: Product used for unknown indication
     Dosage: UNK
     Route: 065
     Dates: end: 20210201

REACTIONS (3)
  - Gaze palsy [Unknown]
  - Hyponatraemia [Recovering/Resolving]
  - Tic [Unknown]

NARRATIVE: CASE EVENT DATE: 20210101
